FAERS Safety Report 14572541 (Version 4)
Quarter: 2018Q2

REPORT INFORMATION
  Report Type: Spontaneous
  Country: AT (occurrence: AT)
  Receive Date: 20180226
  Receipt Date: 20180418
  Transmission Date: 20180711
  Serious: Yes (Death)
  Sender: FDA-Public Use
  Company Number: AT-ABBVIE-18P-009-2268616-00

PATIENT
  Age: 83 Year
  Sex: Female
  Weight: 61.9 kg

DRUGS (9)
  1. FOLSAN [Concomitant]
     Active Substance: FOLIC ACID
     Indication: PROPHYLAXIS
     Route: 048
     Dates: start: 20170721, end: 20170803
  2. MIRTABENE [Concomitant]
     Active Substance: MIRTAZAPINE
     Indication: DEPRESSION
     Route: 048
     Dates: start: 20170721, end: 20170803
  3. DRONABINOL. [Concomitant]
     Active Substance: DRONABINOL
     Indication: PAIN
     Route: 048
     Dates: end: 20170803
  4. DRONABINOL. [Concomitant]
     Active Substance: DRONABINOL
     Indication: NAUSEA
  5. PERFALGAN [Concomitant]
     Active Substance: ACETAMINOPHEN
     Indication: PAIN
     Route: 042
     Dates: start: 20170721, end: 20170725
  6. VENCLEXTA [Suspect]
     Active Substance: VENETOCLAX
     Indication: ACUTE MYELOID LEUKAEMIA
     Dosage: FINAL DOSE: 800MG
     Route: 048
     Dates: start: 20170721, end: 20170728
  7. PANTOLOC [Concomitant]
     Active Substance: PANTOPRAZOLE SODIUM
     Indication: PROPHYLAXIS
     Route: 048
     Dates: start: 20170721, end: 20170805
  8. MAGNESIUM VERLA [Concomitant]
     Active Substance: MAGNESIUM
     Indication: PROPHYLAXIS
     Route: 048
     Dates: start: 20170721, end: 20170803
  9. GLANDOMED [Concomitant]
     Indication: PROPHYLAXIS
     Route: 048
     Dates: start: 20170721, end: 20170803

REACTIONS (1)
  - Acute myeloid leukaemia [Fatal]

NARRATIVE: CASE EVENT DATE: 20170721
